FAERS Safety Report 17902574 (Version 1)
Quarter: 2020Q2

REPORT INFORMATION
  Report Type: Spontaneous
  Country: US (occurrence: US)
  Receive Date: 20200616
  Receipt Date: 20200616
  Transmission Date: 20200714
  Serious: No
  Sender: FDA-Public Use
  Company Number: US-ASTRAZENECA-2020SE73951

PATIENT
  Age: 751 Month
  Sex: Male
  Weight: 88.9 kg

DRUGS (1)
  1. BYDUREON BCISE [Suspect]
     Active Substance: EXENATIDE
     Indication: TYPE 2 DIABETES MELLITUS
     Route: 058
     Dates: start: 201912

REACTIONS (8)
  - Injection site discolouration [Unknown]
  - Incorrect dose administered by device [Unknown]
  - Injection site mass [Unknown]
  - Device leakage [Unknown]
  - Injection site haemorrhage [Unknown]
  - Injection site extravasation [Unknown]
  - Product dose omission [Unknown]
  - Wrong technique in device usage process [Unknown]

NARRATIVE: CASE EVENT DATE: 202004
